FAERS Safety Report 11021824 (Version 1)
Quarter: 2015Q2

REPORT INFORMATION
  Report Type: Spontaneous
  Country: CA (occurrence: CA)
  Receive Date: 20150413
  Receipt Date: 20150413
  Transmission Date: 20150821
  Serious: Yes (Other)
  Sender: FDA-Public Use
  Company Number: CA-SA-2015SA045167

PATIENT
  Age: 70 Year
  Sex: Female

DRUGS (2)
  1. NASACORT AQ [Suspect]
     Active Substance: TRIAMCINOLONE ACETONIDE
     Indication: RHINITIS ALLERGIC
     Dosage: AT A DOSE OF 1 SPRAY ONCE DAILY IN WINTER THEN AS NEEDED IN SUMMER
     Route: 045
  2. SYNTHROID [Concomitant]
     Active Substance: LEVOTHYROXINE SODIUM
     Indication: THYROID DISORDER
     Route: 048

REACTIONS (7)
  - Vision blurred [Recovering/Resolving]
  - Sinusitis [Recovering/Resolving]
  - Acne [Recovering/Resolving]
  - Purulence [Recovering/Resolving]
  - Staphylococcal infection [Recovering/Resolving]
  - Viral infection [Recovering/Resolving]
  - Nasopharyngitis [Recovering/Resolving]

NARRATIVE: CASE EVENT DATE: 20150218
